FAERS Safety Report 4497215-3 (Version None)
Quarter: 2004Q3

REPORT INFORMATION
  Report Type: 
  Country: None (occurrence: None)
  Receive Date: 20040927
  Receipt Date: 20040712
  Transmission Date: 20050211
  Serious: No
  Sender: FDA-Public Use
  Company Number: USA040568672

PATIENT
  Age: 51 Year
  Sex: Male

DRUGS (3)
  1. STRATTERA [Suspect]
     Indication: ATTENTION DEFICIT/HYPERACTIVITY DISORDER
     Dosage: 60 MG DAY
     Dates: start: 20040513, end: 20040520
  2. ANACIN [Concomitant]
  3. VARDENAFIL HYDROCHLORIDE [Concomitant]

REACTIONS (2)
  - TESTICULAR PAIN [None]
  - URINARY HESITATION [None]
